FAERS Safety Report 21035533 (Version 3)
Quarter: 2023Q1

REPORT INFORMATION
  Report Type: Report from Study
  Country: CA (occurrence: CA)
  Receive Date: 20220701
  Receipt Date: 20230323
  Transmission Date: 20230417
  Serious: Yes (Other)
  Sender: FDA-Public Use
  Company Number: CA-NOVARTISPH-NVSC2022CA124845

PATIENT
  Age: 68 Year
  Sex: Male

DRUGS (5)
  1. PIRFENIDONE [Suspect]
     Active Substance: PIRFENIDONE
     Indication: Pulmonary fibrosis
     Dosage: UNK
     Route: 048
     Dates: start: 20220521
  2. PIRFENIDONE [Suspect]
     Active Substance: PIRFENIDONE
     Indication: Idiopathic pulmonary fibrosis
     Dosage: 2 DOSAGE FORM, TID
     Route: 065
     Dates: start: 20220528
  3. PIRFENIDONE [Suspect]
     Active Substance: PIRFENIDONE
     Dosage: 3 DOSAGE FORM, TID (3 TABLETS3 TIMES A DAY)
     Route: 048
     Dates: start: 20220604
  4. PIRFENIDONE [Suspect]
     Active Substance: PIRFENIDONE
     Dosage: UNK
     Route: 048
     Dates: start: 20220613
  5. PIRFENIDONE [Suspect]
     Active Substance: PIRFENIDONE
     Dosage: TID
     Route: 048

REACTIONS (13)
  - Cardiac fibrillation [Unknown]
  - Insomnia [Unknown]
  - Sleep disorder [Unknown]
  - Abdominal pain upper [Unknown]
  - Respiratory rate decreased [Unknown]
  - Forced vital capacity decreased [Unknown]
  - Fatigue [Unknown]
  - Diarrhoea [Unknown]
  - Pain in extremity [Unknown]
  - Peripheral swelling [Unknown]
  - Fluid retention [Unknown]
  - Tendon pain [Unknown]
  - Gait disturbance [Unknown]

NARRATIVE: CASE EVENT DATE: 20220501
